FAERS Safety Report 22610078 (Version 1)
Quarter: 2023Q2

REPORT INFORMATION
  Report Type: Spontaneous
  Country: ES (occurrence: ES)
  Receive Date: 20230616
  Receipt Date: 20230616
  Transmission Date: 20230722
  Serious: Yes (Life-Threatening, Hospitalization)
  Sender: FDA-Public Use
  Company Number: None

PATIENT
  Age: 9 Year
  Sex: Female
  Weight: 31.1 kg

DRUGS (6)
  1. CARBOPLATIN [Suspect]
     Active Substance: CARBOPLATIN
     Indication: Rhabdoid tumour
     Dosage: 555 MG, CYCLIC
     Route: 042
     Dates: start: 20230328, end: 20230522
  2. ETOPOSIDE [Suspect]
     Active Substance: ETOPOSIDE
     Indication: Rhabdoid tumour
     Dosage: 111 MG, CYCLIC
     Route: 042
     Dates: start: 20221217, end: 20230522
  3. IFOSFAMIDE [Suspect]
     Active Substance: IFOSFAMIDE
     Indication: Rhabdoid tumour
     Dosage: 2220 MG, CYCLIC
     Route: 042
     Dates: start: 20221217, end: 20230522
  4. VINCRISTINE [Concomitant]
     Active Substance: VINCRISTINE
     Indication: Rhabdoid tumour
     Route: 042
     Dates: start: 20221203, end: 20230307
  5. CYCLOPHOSPHAMIDE [Concomitant]
     Active Substance: CYCLOPHOSPHAMIDE
     Indication: Rhabdoid tumour
     Route: 042
     Dates: start: 20220603, end: 20230307
  6. DOXORUBICIN [Concomitant]
     Active Substance: DOXORUBICIN
     Indication: Rhabdoid tumour
     Dates: start: 20221203, end: 20230307

REACTIONS (6)
  - Agranulocytosis [Recovering/Resolving]
  - Thrombocytopenia [Recovering/Resolving]
  - Febrile neutropenia [Unknown]
  - Pancytopenia [Unknown]
  - Off label use [Unknown]
  - Off label use [Unknown]

NARRATIVE: CASE EVENT DATE: 20230601
